FAERS Safety Report 9391383 (Version 1)
Quarter: 2013Q3

REPORT INFORMATION
  Report Type: Report from Study
  Country: JP (occurrence: JP)
  Receive Date: 20130709
  Receipt Date: 20130709
  Transmission Date: 20140515
  Serious: Yes (Hospitalization, Other)
  Sender: FDA-Public Use
  Company Number: JP-ASTELLAS-2013EU005716

PATIENT
  Age: 4 Year
  Sex: Male

DRUGS (8)
  1. TACROLIMUS SYSTEMIC [Suspect]
     Indication: JUVENILE IDIOPATHIC ARTHRITIS
     Dosage: 4 MG, UID/QD
     Route: 048
     Dates: start: 20130130, end: 20130404
  2. PREDNISOLONE [Suspect]
     Indication: JUVENILE IDIOPATHIC ARTHRITIS
     Dosage: 7.5 MG, BID
     Route: 048
     Dates: start: 20110216, end: 20110524
  3. PREDNISOLONE [Suspect]
     Dosage: 15 MG, UID/QD
     Route: 048
     Dates: start: 20130413
  4. TOCILIZUMAB [Suspect]
     Indication: JUVENILE IDIOPATHIC ARTHRITIS
     Dosage: 160 MG, OTHER
     Route: 041
     Dates: start: 20110525, end: 20110615
  5. TOCILIZUMAB [Suspect]
     Dosage: 200 MG, OTHER
     Route: 041
     Dates: start: 20110801, end: 20130412
  6. FAMOTIDINE [Concomitant]
     Indication: PROPHYLAXIS
     Dosage: UNK
     Route: 048
  7. ONEALFA [Concomitant]
     Indication: PROPHYLAXIS
     Dosage: UNK
     Route: 048
  8. PREDONINE                          /00016201/ [Concomitant]
     Indication: JUVENILE IDIOPATHIC ARTHRITIS
     Dosage: 8.5 MG, BID
     Route: 048
     Dates: start: 20110216

REACTIONS (7)
  - Cellulitis [Recovered/Resolved]
  - Infected cyst [Recovered/Resolved]
  - Erythema [Recovered/Resolved]
  - Pyrexia [Recovered/Resolved]
  - Mycoplasma infection [Recovered/Resolved]
  - Chlamydial infection [Recovered/Resolved]
  - Erythema infectiosum [Recovered/Resolved]
